FAERS Safety Report 8014487-9 (Version None)
Quarter: 2011Q4

REPORT INFORMATION
  Report Type: 
  Country: None (occurrence: None)
  Receive Date: 20111229
  Receipt Date: 20111221
  Transmission Date: 20120403
  Serious: Yes (Other)
  Sender: FDA-Public Use
  Company Number: GB-PFIZER INC-K201100373

PATIENT
  Age: 38 Year
  Sex: Male

DRUGS (2)
  1. ALSUMA [Suspect]
     Dosage: UNK
  2. SERTRALINE HYDROCHLORIDE [Interacting]
     Dosage: 300 MG, UNK

REACTIONS (3)
  - OVERDOSE [None]
  - DRUG INTERACTION [None]
  - APPENDICITIS [None]
